FAERS Safety Report 10411942 (Version 1)
Quarter: 2014Q3

REPORT INFORMATION
  Report Type: Spontaneous
  Country: US (occurrence: None)
  Receive Date: 20140826
  Receipt Date: 20140826
  Transmission Date: 20150326
  Serious: No
  Sender: FDA-Public Use
  Company Number: None

PATIENT
  Sex: Male

DRUGS (1)
  1. SILDENAFIL (SILDENAFIL CITRATE) [Suspect]
     Active Substance: SILDENAFIL CITRATE
     Indication: ERECTILE DYSFUNCTION
     Dosage: 1-5 TABS DAILY AS NEEDED ORAL
     Route: 048
     Dates: start: 20140721, end: 20140821

REACTIONS (3)
  - Dizziness [None]
  - Palpitations [None]
  - Product substitution issue [None]
